FAERS Safety Report 9335753 (Version 2)
Quarter: 2013Q2

REPORT INFORMATION
  Report Type: Report from Study
  Country: CO (occurrence: CO)
  Receive Date: 20130607
  Receipt Date: 20130617
  Transmission Date: 20140414
  Serious: Yes (Hospitalization)
  Sender: FDA-Public Use
  Company Number: CO-ROCHE-1233744

PATIENT
  Age: 65 Year
  Sex: Male

DRUGS (1)
  1. CELLCEPT [Suspect]
     Indication: RENAL TRANSPLANT
     Route: 048
     Dates: start: 20110504

REACTIONS (2)
  - Urinary tract infection [Recovered/Resolved]
  - Vesicoureteric reflux [Recovered/Resolved]
